FAERS Safety Report 14552651 (Version 1)
Quarter: 2018Q1

REPORT INFORMATION
  Report Type: Spontaneous
  Country: US (occurrence: US)
  Receive Date: 20180216
  Receipt Date: 20180216
  Transmission Date: 20180509
  Serious: Yes (Other)
  Sender: FDA-Public Use
  Company Number: None

PATIENT
  Age: 36 Year
  Sex: Female
  Weight: 118.84 kg

DRUGS (1)
  1. BUPRENORPHINE/NALOXONE 8/2 [Suspect]
     Active Substance: BUPRENORPHINE\NALOXONE
     Indication: DRUG DEPENDENCE
     Dosage: DOSE - 8/2 DF
     Route: 060
     Dates: start: 20170404, end: 20180216

REACTIONS (5)
  - Drug dependence [None]
  - Condition aggravated [None]
  - Loss of personal independence in daily activities [None]
  - Family stress [None]
  - Mood altered [None]
